FAERS Safety Report 11062851 (Version 1)
Quarter: 2015Q2

REPORT INFORMATION
  Report Type: Spontaneous
  Country: CA (occurrence: None)
  Receive Date: 20150422
  Receipt Date: 20150422
  Transmission Date: 20150821
  Serious: Yes (Other)
  Sender: FDA-Public Use
  Company Number: AMAG201500315

PATIENT
  Age: 36 Year
  Sex: Female
  Weight: 56 kg

DRUGS (4)
  1. FERAMAX (POLUSACCHARIDE-IRON COMPLEX) [Concomitant]
  2. ELTROXIN (LEVOTHYROXINE SODIUM) [Concomitant]
     Active Substance: LEVOTHYROXINE
  3. TECTA (PANTOPRAZOLE SODIUM SESQUIHYDRATE) [Concomitant]
  4. FERAHEME [Suspect]
     Active Substance: FERUMOXYTOL NON-STOICHIOMETRIC MAGNETITE
     Indication: BLOOD IRON ABNORMAL
     Dosage: INFUSION

REACTIONS (4)
  - Ear discomfort [None]
  - Flushing [None]
  - Chest pain [None]
  - Head discomfort [None]
